FAERS Safety Report 21877673 (Version 1)
Quarter: 2023Q1

REPORT INFORMATION
  Report Type: Spontaneous
  Country: US (occurrence: US)
  Receive Date: 20230118
  Receipt Date: 20230118
  Transmission Date: 20230417
  Serious: Yes (Other)
  Sender: FDA-Public Use
  Company Number: US-UROGEN PHARMA LTD.-2023-UGN-000003

PATIENT

DRUGS (3)
  1. JELMYTO [Suspect]
     Active Substance: MITOMYCIN
     Indication: Malignant neoplasm of renal pelvis
     Dosage: ONE TIME PER WEEK (INSTILLATION)
     Route: 065
     Dates: start: 20221215, end: 20221215
  2. JELMYTO [Suspect]
     Active Substance: MITOMYCIN
     Indication: Ureteric cancer
     Dosage: ONE TIME PER WEEK (INSTILLATION)
     Route: 065
     Dates: start: 20221222, end: 20221222
  3. JELMYTO [Suspect]
     Active Substance: MITOMYCIN
     Dosage: ONE TIME PER WEEK (INSTILLATION)
     Route: 065
     Dates: start: 20221229, end: 20221229

REACTIONS (2)
  - Pancytopenia [Unknown]
  - Vaginal haemorrhage [Unknown]
